FAERS Safety Report 10202790 (Version 1)
Quarter: 2014Q2

REPORT INFORMATION
  Report Type: Spontaneous
  Country: ES (occurrence: ES)
  Receive Date: 20140528
  Receipt Date: 20140528
  Transmission Date: 20141212
  Serious: Yes (Other)
  Sender: FDA-Public Use
  Company Number: PHHY2014ES061074

PATIENT
  Age: 53 Year
  Sex: Female

DRUGS (1)
  1. DOCETAXEL [Suspect]
     Indication: INVASIVE DUCTAL BREAST CARCINOMA
     Route: 042

REACTIONS (5)
  - Eccrine squamous syringometaplasia [Recovered/Resolved]
  - Skin plaque [Recovered/Resolved]
  - Infusion site erythema [Recovered/Resolved]
  - Skin exfoliation [Unknown]
  - Infusion site extravasation [Unknown]
